FAERS Safety Report 16414797 (Version 1)
Quarter: 2019Q3

REPORT INFORMATION
  Report Type: Spontaneous
  Country: US (occurrence: US)
  Receive Date: 20190610
  Receipt Date: 20190610
  Transmission Date: 20191004
  Serious: Yes (Death)
  Sender: FDA-Public Use
  Company Number: None

PATIENT
  Age: 67 Year
  Sex: Male

DRUGS (6)
  1. MELOXICAM. [Concomitant]
     Active Substance: MELOXICAM
  2. CIPROFLOXACIN. [Concomitant]
     Active Substance: CIPROFLOXACIN
  3. PREDNISONE. [Concomitant]
     Active Substance: PREDNISONE
  4. ABIRATERONE ACETATE. [Suspect]
     Active Substance: ABIRATERONE ACETATE
     Indication: PROSTATE CANCER
     Route: 048
     Dates: start: 20190320, end: 20190420
  5. MIRTAZAPINE. [Concomitant]
     Active Substance: MIRTAZAPINE
  6. LINEZOLID. [Concomitant]
     Active Substance: LINEZOLID

REACTIONS (1)
  - Death [None]

NARRATIVE: CASE EVENT DATE: 20190420
